FAERS Safety Report 12059638 (Version 3)
Quarter: 2016Q1

REPORT INFORMATION
  Report Type: Spontaneous
  Country: NL (occurrence: NL)
  Receive Date: 20160210
  Receipt Date: 20160216
  Transmission Date: 20160526
  Serious: Yes (Life-Threatening, Disabling)
  Sender: FDA-Public Use
  Company Number: NL-JNJFOC-20160207386

PATIENT
  Age: 39 Year
  Sex: Male
  Weight: 110 kg

DRUGS (7)
  1. FLUPHENAZINE [Suspect]
     Active Substance: FLUPHENAZINE
     Indication: AGGRESSION
     Dosage: 200 MG DEPOT
     Route: 030
     Dates: start: 20070801, end: 20101001
  2. ZUCLOPENTIXOL [Suspect]
     Active Substance: ZUCLOPENTHIXOL
     Indication: PRODUCT USED FOR UNKNOWN INDICATION
     Route: 048
  3. PERFENAZINE [Suspect]
     Active Substance: PERPHENAZINE
     Indication: AGGRESSION
     Dosage: 200 MG DEPOT
     Route: 030
     Dates: start: 20070801, end: 20101001
  4. BROOMPERIDOL [Suspect]
     Active Substance: BROMPERIDOL
     Indication: AGGRESSION
     Dosage: 200 MG DEPOT
     Route: 030
     Dates: start: 20070801, end: 20101001
  5. CHLORPROMAZINE. [Suspect]
     Active Substance: CHLORPROMAZINE
     Indication: AGGRESSION
     Dosage: 200 MG DEPOT
     Route: 030
     Dates: start: 20070801, end: 20101001
  6. HALOPERIDOL. [Suspect]
     Active Substance: HALOPERIDOL
     Indication: AGGRESSION
     Route: 030
     Dates: start: 20070801, end: 20101001
  7. PIMOZIDE [Suspect]
     Active Substance: PIMOZIDE
     Indication: AGGRESSION
     Dosage: 200 MG DEPOT
     Route: 030
     Dates: start: 20070801, end: 20101001

REACTIONS (2)
  - Poisoning [Not Recovered/Not Resolved]
  - Brain injury [Unknown]

NARRATIVE: CASE EVENT DATE: 20070801
